FAERS Safety Report 6273138-4 (Version None)
Quarter: 2009Q3

REPORT INFORMATION
  Report Type: 
  Country: None (occurrence: None)
  Receive Date: 20090715
  Receipt Date: 20090715
  Transmission Date: 20100115
  Serious: Yes (Other)
  Sender: FDA-Public Use
  Company Number: None

PATIENT
  Age: 54 Year
  Sex: Female
  Weight: 53.5244 kg

DRUGS (1)
  1. BONIVA [Suspect]
     Indication: OSTEOPENIA
     Dosage: 1 TABLET ONCE MONTHLY PO
     Route: 048
     Dates: start: 20060601, end: 20090620

REACTIONS (7)
  - ARTHRALGIA [None]
  - BONE ATROPHY [None]
  - BONE PAIN [None]
  - JOINT CREPITATION [None]
  - LOOSE TOOTH [None]
  - OSTEOGENESIS IMPERFECTA [None]
  - OSTEOPOROSIS [None]
